FAERS Safety Report 4733099-3 (Version None)
Quarter: 2005Q3

REPORT INFORMATION
  Report Type: 
  Country: None (occurrence: None)
  Receive Date: 20050729
  Receipt Date: 20050721
  Transmission Date: 20060218
  Serious: Yes (Hospitalization)
  Sender: FDA-Public Use
  Company Number: FRWYE847321JUL05

PATIENT
  Age: 45 Year
  Sex: Female

DRUGS (6)
  1. EFFEXOR XR [Suspect]
     Dosage: 37.5 MG 2X PER 1 DAY ORAL
     Route: 048
     Dates: start: 20050308
  2. ANTIVIRALS FOR SYSTEMIC USE (ANTIVIRALS FOR SYSTEMIC USE, , 0) [Suspect]
     Dosage: 2 DOSE 1X PER 1 DAY
     Dates: start: 20050308
  3. VALPROATE SODIUM [Suspect]
     Dosage: 300 MG 2X PER 1 DAY ORAL
     Route: 048
     Dates: start: 20050308
  4. NORVIR [Suspect]
     Dosage: 2 DOSE 1X PER 1 DAY ORAL
     Route: 048
     Dates: start: 20050308
  5. TENOFOVIR DISOPROXIL FUMARATE (TENOFOVIR DISOPROXIL FUMARATE, , 0) [Suspect]
     Dosage: 300 MG 1X PER 1 DAY ORAL
     Route: 048
     Dates: start: 20050308
  6. ZERIT [Suspect]
     Dosage: 2 DOSE 1X PER 1 DAY ORAL
     Route: 048
     Dates: start: 20050308

REACTIONS (3)
  - ANGIONEUROTIC OEDEMA [None]
  - DYSPNOEA [None]
  - URTICARIA [None]
